FAERS Safety Report 9305758 (Version 6)
Quarter: 2013Q4

REPORT INFORMATION
  Report Type: Report from Study
  Country: US (occurrence: US)
  Receive Date: 20130523
  Receipt Date: 20131011
  Transmission Date: 20140711
  Serious: Yes (Hospitalization)
  Sender: FDA-Public Use
  Company Number: US-ACTELION-A-NJ2013-83664

PATIENT
  Age: 71 Year
  Sex: Male

DRUGS (2)
  1. VENTAVIS [Suspect]
     Indication: PULMONARY HYPERTENSION
     Dosage: 5 MCG, 4-6 TIMES / DAY
     Route: 055
     Dates: start: 201105
  2. COUMADIN [Concomitant]

REACTIONS (11)
  - Skin cancer [Not Recovered/Not Resolved]
  - Skin graft [Not Recovered/Not Resolved]
  - Fall [Not Recovered/Not Resolved]
  - Gastritis [Recovering/Resolving]
  - Nausea [Recovering/Resolving]
  - Vomiting [Recovering/Resolving]
  - Benign prostatic hyperplasia [Recovered/Resolved]
  - Urinary tract obstruction [Recovered/Resolved]
  - Renal failure [Recovered/Resolved]
  - Urinary retention [Recovered/Resolved]
  - Drug dose omission [Unknown]
